FAERS Safety Report 8370194-4 (Version None)
Quarter: 2012Q2

REPORT INFORMATION
  Report Type: 
  Country: None (occurrence: None)
  Receive Date: 20120518
  Receipt Date: 20120514
  Transmission Date: 20120825
  Serious: Yes (Life-Threatening, Hospitalization)
  Sender: FDA-Public Use
  Company Number: DE-ASTRAZENECA-2012SE28996

PATIENT
  Age: 27286 Day
  Sex: Male
  Weight: 80 kg

DRUGS (1)
  1. BRILIQUE [Suspect]
     Indication: ACUTE MYOCARDIAL INFARCTION
     Route: 048
     Dates: start: 20120422, end: 20120430

REACTIONS (3)
  - PULMONARY OEDEMA [None]
  - PULMONARY HILAR ENLARGEMENT [None]
  - RESPIRATORY FAILURE [None]
